FAERS Safety Report 6862930-0 (Version None)
Quarter: 2010Q2

REPORT INFORMATION
  Report Type: 
  Country: None (occurrence: None)
  Receive Date: 20100528
  Receipt Date: 20100406
  Transmission Date: 20101027
  Serious: No
  Sender: FDA-Public Use
  Company Number: 009825

PATIENT
  Sex: Male
  Weight: 83.9 kg

DRUGS (4)
  1. LACOSAMIDE [Suspect]
     Indication: CONVULSION
     Dosage: 100 MG BID ORAL, 150 MG BID ORAL, 200 MG BID ORAL
     Route: 048
     Dates: start: 20091101, end: 20100101
  2. LACOSAMIDE [Suspect]
     Indication: CONVULSION
     Dosage: 100 MG BID ORAL, 150 MG BID ORAL, 200 MG BID ORAL
     Route: 048
     Dates: start: 20100101
  3. DEPAKOTE [Concomitant]
  4. GLUCOPHAGE [Concomitant]

REACTIONS (4)
  - CONVULSION [None]
  - DYSKINESIA [None]
  - SPEECH DISORDER [None]
  - TIC [None]
